FAERS Safety Report 19129340 (Version 1)
Quarter: 2021Q2

REPORT INFORMATION
  Report Type: Spontaneous
  Country: CH (occurrence: CH)
  Receive Date: 20210413
  Receipt Date: 20210413
  Transmission Date: 20210717
  Serious: Yes (Hospitalization, Other)
  Sender: FDA-Public Use
  Company Number: CH-CASPER PHARMA LLC-2021CAS000191

PATIENT
  Age: 21 Year
  Sex: Male

DRUGS (6)
  1. PREDNISOLONE. [Concomitant]
     Active Substance: PREDNISOLONE
     Indication: ANTI-GLOMERULAR BASEMENT MEMBRANE DISEASE
     Dosage: 60 MILLIGRAM, QD
     Route: 065
  2. AZATHIOPRINE. [Suspect]
     Active Substance: AZATHIOPRINE
     Indication: TRANSPLANT REJECTION
     Dosage: 25 MILLIGRAM, QD
     Route: 065
  3. AZATHIOPRINE. [Suspect]
     Active Substance: AZATHIOPRINE
     Dosage: 50 MILLIGRAM, QD
     Route: 065
  4. CYCLOSPORINE. [Concomitant]
     Active Substance: CYCLOSPORINE
     Indication: TRANSPLANT REJECTION
  5. CYCLOSPORINE. [Concomitant]
     Active Substance: CYCLOSPORINE
     Indication: IMMUNOSUPPRESSANT DRUG THERAPY
     Dosage: UNK
     Route: 065
  6. AZATHIOPRINE. [Suspect]
     Active Substance: AZATHIOPRINE
     Indication: ANTI-GLOMERULAR BASEMENT MEMBRANE DISEASE
     Dosage: 150 MILLIGRAM, QD
     Route: 048

REACTIONS (2)
  - Product use in unapproved indication [Unknown]
  - Drug hypersensitivity [Recovered/Resolved]
